FAERS Safety Report 19698400 (Version 1)
Quarter: 2021Q3

REPORT INFORMATION
  Report Type: Spontaneous
  Country: US (occurrence: US)
  Receive Date: 20210813
  Receipt Date: 20210813
  Transmission Date: 20211014
  Serious: Yes (Other)
  Sender: FDA-Public Use
  Company Number: US-BRACCO-2021US02822

PATIENT
  Age: 71 Year
  Sex: Male

DRUGS (4)
  1. VERSED [Concomitant]
     Active Substance: MIDAZOLAM HYDROCHLORIDE
  2. HEPARIN [Concomitant]
     Active Substance: HEPARIN SODIUM
     Dosage: UNK
  3. ISOVUE 370 [Suspect]
     Active Substance: IOPAMIDOL
     Indication: THROMBECTOMY
     Dosage: UNK UNK, SINGLE
     Dates: start: 20210524, end: 20210524
  4. FENTANYL. [Concomitant]
     Active Substance: FENTANYL

REACTIONS (2)
  - Hypersensitivity [Recovered/Resolved]
  - Ventricular tachycardia [Recovered/Resolved]

NARRATIVE: CASE EVENT DATE: 20210524
